FAERS Safety Report 19122866 (Version 1)
Quarter: 2021Q2

REPORT INFORMATION
  Report Type: Spontaneous
  Country: ES (occurrence: ES)
  Receive Date: 20210412
  Receipt Date: 20210412
  Transmission Date: 20210717
  Serious: Yes (Other)
  Sender: FDA-Public Use
  Company Number: NVSC2021ES076637

PATIENT
  Age: 54 Year
  Sex: Male

DRUGS (5)
  1. ERYTHROMYCIN. [Suspect]
     Active Substance: ERYTHROMYCIN
     Indication: RESPIRATORY TRACT INFECTION
     Dosage: 1 G, QD
     Route: 042
     Dates: start: 20201106, end: 20201109
  2. MEROPENEM. [Concomitant]
     Active Substance: MEROPENEM
     Indication: RESPIRATORY TRACT INFECTION
     Dosage: 3 G, QD
     Route: 042
     Dates: start: 20201103, end: 20201113
  3. TEICOPLANINA [Concomitant]
     Active Substance: TEICOPLANIN
     Indication: RESPIRATORY TRACT INFECTION
     Dosage: 400 MG, TOTAL
     Route: 042
     Dates: start: 20201103, end: 20201106
  4. LINEZOLID. [Suspect]
     Active Substance: LINEZOLID
     Indication: RESPIRATORY TRACT INFECTION
     Dosage: 1.2 G, 1 TOTAL
     Route: 042
     Dates: start: 20201106, end: 20201110
  5. FLUCONAZOLE. [Suspect]
     Active Substance: FLUCONAZOLE
     Indication: RESPIRATORY TRACT INFECTION
     Dosage: 200 MG, QD
     Route: 042
     Dates: start: 20201106, end: 20201109

REACTIONS (1)
  - Hepatic cytolysis [Recovered/Resolved]

NARRATIVE: CASE EVENT DATE: 20201109
